FAERS Safety Report 6920099-8 (Version None)
Quarter: 2010Q3

REPORT INFORMATION
  Report Type: 
  Country: None (occurrence: None)
  Receive Date: 20100811
  Receipt Date: 20100805
  Transmission Date: 20110219
  Serious: Yes (Life-Threatening, Hospitalization)
  Sender: FDA-Public Use
  Company Number: US-GENZYME-CLOF-1000781

PATIENT
  Sex: Male
  Weight: 75 kg

DRUGS (43)
  1. CLOFARABINE [Suspect]
     Indication: ACUTE LYMPHOCYTIC LEUKAEMIA
     Dosage: 77 MG, QD
     Route: 042
     Dates: start: 20091120, end: 20091124
  2. ETOPOSIDE [Suspect]
     Indication: ACUTE LYMPHOCYTIC LEUKAEMIA
     Dosage: 193 MG, QD
     Route: 042
     Dates: start: 20091120, end: 20091124
  3. CYCLOPHOSPHAMIDE [Suspect]
     Indication: ACUTE LYMPHOCYTIC LEUKAEMIA
     Dosage: 850 MG, QD
     Route: 042
     Dates: start: 20091121, end: 20091125
  4. GRANULOCYTE COLONY STIMULATING FACTOR [Concomitant]
     Indication: WHITE BLOOD CELL COUNT DECREASED
     Dosage: 300 MCG, UNK
     Route: 042
     Dates: start: 20091125, end: 20100103
  5. ACETAMINOPHEN [Concomitant]
     Indication: PAIN
     Dosage: 650 MG, UNK
     Route: 048
     Dates: start: 20091124, end: 20100104
  6. ACETAMINOPHEN [Concomitant]
     Indication: CHILLS
  7. ACETAMINOPHEN [Concomitant]
     Indication: PYREXIA
  8. ACYCLOVIR [Concomitant]
     Indication: HERPES VIRUS INFECTION
     Dosage: 400 MG, UNK
     Route: 042
     Dates: start: 20091120, end: 20100105
  9. AMICAR [Concomitant]
     Indication: EPISTAXIS
     Dosage: 6 G, UNK
     Route: 048
     Dates: start: 20091123, end: 20091123
  10. AMICAR [Concomitant]
     Dosage: 6000 MG, UNK
     Route: 042
     Dates: start: 20091130, end: 20091130
  11. BENADRYL [Concomitant]
     Indication: PREMEDICATION
     Dosage: 50 MG, UNK
     Route: 042
     Dates: start: 20091124, end: 20100101
  12. REGLAN [Concomitant]
     Indication: NAUSEA
     Dosage: 50 MG, UNK
     Route: 042
     Dates: start: 20091124, end: 20091228
  13. REGLAN [Concomitant]
     Dosage: 50 MG, UNK
     Dates: start: 20091121
  14. CALCIUM GLUCONATE [Concomitant]
     Indication: HYPOCALCAEMIA
     Dosage: 500 MG, UNK
     Route: 042
     Dates: start: 20091125, end: 20091130
  15. VANCOMYCIN [Concomitant]
     Indication: INFECTION
     Dosage: 1000 MG, UNK
     Route: 042
     Dates: start: 20091129, end: 20091214
  16. ZANTAC [Concomitant]
     Indication: PRODUCT USED FOR UNKNOWN INDICATION
  17. ATIVAN [Concomitant]
     Indication: ANXIETY
     Dosage: 1 MG, UNK
     Dates: start: 20091121
  18. DEMEROL [Concomitant]
     Indication: PAIN
  19. DEMEROL [Concomitant]
     Indication: CHILLS
  20. DEMEROL [Concomitant]
     Indication: PYREXIA
  21. MORPHINE [Concomitant]
     Indication: ABDOMINAL PAIN
  22. AMPHOTERICIN B [Concomitant]
     Indication: PROPHYLAXIS
     Dosage: 225 MG, UNK
     Route: 042
     Dates: start: 20091119
  23. HYDROCORTISONE [Concomitant]
     Indication: ADRENAL INSUFFICIENCY
     Dosage: 100 MG, UNK
     Route: 042
     Dates: start: 20091118
  24. LEUKINE [Concomitant]
     Indication: PRODUCT USED FOR UNKNOWN INDICATION
  25. KETAMINE [Concomitant]
     Indication: SEDATION
     Dosage: 15 MG, UNK
     Dates: start: 20091210, end: 20091210
  26. PROPOFOL [Concomitant]
     Indication: SEDATION
     Dosage: 140 MG, UNK
     Dates: start: 20091210, end: 20091210
  27. MORPHINE [Concomitant]
     Indication: PAIN MANAGEMENT
     Dosage: 2 MG, UNK
     Route: 042
     Dates: start: 20091118
  28. DIPHENHYDRAMINE [Concomitant]
     Indication: PROPHYLAXIS
     Dosage: 50 MG, UNK
     Dates: start: 20091118
  29. CALCIUM CARBONATE [Concomitant]
     Indication: MEDICAL DIET
     Dosage: 1250 MG, UNK
     Route: 048
     Dates: start: 20091124, end: 20091221
  30. NEUTRA-PHOS [Concomitant]
     Indication: MEDICAL DIET
     Dosage: 2 OTHER, QD
     Route: 048
     Dates: start: 20091211, end: 20091217
  31. ONDANSETRON [Concomitant]
     Indication: NAUSEA
     Dosage: 10.5 MG, UNK
     Route: 042
     Dates: start: 20091120, end: 20100105
  32. RANITIDINE [Concomitant]
     Indication: PROPHYLAXIS
     Dosage: 50 MG, UNK
     Route: 042
     Dates: start: 20091210, end: 20091228
  33. RANITIDINE [Concomitant]
     Indication: GASTRITIS
  34. SARGRAMOSTIM [Concomitant]
     Indication: PRODUCT USED FOR UNKNOWN INDICATION
     Dosage: 500 MCG, UNK
     Route: 058
     Dates: start: 20091202, end: 20091217
  35. CALCIUM CHLORIDE [Concomitant]
     Indication: MEDICAL DIET
     Dosage: 500 MG, UNK
     Route: 042
     Dates: start: 20091122, end: 20091123
  36. GENTAMICIN [Concomitant]
     Indication: PROPHYLAXIS
     Dosage: 150 MG, UNK
     Route: 042
     Dates: start: 20091118, end: 20091129
  37. RASBURICASE [Concomitant]
     Indication: TUMOUR LYSIS SYNDROME
     Dosage: 15 MG, UNK
     Route: 042
     Dates: start: 20091122, end: 20091122
  38. RIBOFLAVIN TAB [Concomitant]
     Indication: HYPOVITAMINOSIS
     Dosage: 25 MG, UNK
     Route: 048
     Dates: start: 20091122, end: 20091127
  39. THIAMINE HCL [Concomitant]
     Indication: HYPOVITAMINOSIS
     Dosage: 50 MG, UNK
     Route: 042
     Dates: start: 20091121, end: 20091127
  40. LORAZEPAM [Concomitant]
     Indication: ANXIETY
     Dosage: 1 MG, UNK
     Route: 042
     Dates: start: 20091121
  41. METOCLOPRAMIDE [Concomitant]
     Indication: PROPHYLAXIS
     Dosage: 50 MG, UNK
     Route: 042
     Dates: start: 20091121
  42. METOCLOPRAMIDE [Concomitant]
     Indication: NAUSEA
  43. METOCLOPRAMIDE [Concomitant]
     Indication: VOMITING

REACTIONS (6)
  - CAECITIS [None]
  - CLOSTRIDIAL INFECTION [None]
  - ENTEROCOCCAL BACTERAEMIA [None]
  - ESCHERICHIA INFECTION [None]
  - FEBRILE NEUTROPENIA [None]
  - PNEUMONIA [None]
